FAERS Safety Report 12430229 (Version 1)
Quarter: 2016Q2

REPORT INFORMATION
  Report Type: Spontaneous
  Country: CH (occurrence: CH)
  Receive Date: 20160602
  Receipt Date: 20160602
  Transmission Date: 20160815
  Serious: Yes (Hospitalization, Other)
  Sender: FDA-Public Use
  Company Number: CH-ASTRAZENECA-2016SE56019

PATIENT
  Age: 975 Month
  Sex: Male

DRUGS (7)
  1. DISTRANEURIN [Concomitant]
     Active Substance: CLOMETHIAZOLE
  2. ASPIRIN CARDIO [Concomitant]
     Active Substance: ASPIRIN
     Route: 048
  3. AMLODIPIN [Concomitant]
     Active Substance: AMLODIPINE BESYLATE
     Route: 048
  4. REMINYL [Interacting]
     Active Substance: GALANTAMINE
     Indication: AGITATION
     Route: 048
     Dates: start: 20150630, end: 20160420
  5. SEROQUEL [Suspect]
     Active Substance: QUETIAPINE FUMARATE
     Indication: AGITATION
     Route: 048
     Dates: start: 201509, end: 20160420
  6. ATACAND PLUS [Concomitant]
     Active Substance: CANDESARTAN CILEXETIL\HYDROCHLOROTHIAZIDE
     Dosage: 1 DF, DAILY
     Route: 048
     Dates: end: 20160420
  7. NEPHROTRANS [Concomitant]
     Route: 048

REACTIONS (7)
  - Vomiting [Unknown]
  - Cerebral atrophy [Unknown]
  - Drug interaction [Unknown]
  - Vertigo [Unknown]
  - Mixed dementia [Unknown]
  - Akinesia [Recovered/Resolved]
  - Muscle rigidity [Recovered/Resolved]

NARRATIVE: CASE EVENT DATE: 201604
